FAERS Safety Report 15535445 (Version 1)
Quarter: 2018Q4

REPORT INFORMATION
  Report Type: Spontaneous
  Country: US (occurrence: US)
  Receive Date: 20181020
  Receipt Date: 20181020
  Transmission Date: 20190205
  Serious: Yes (Life-Threatening, Other)
  Sender: FDA-Public Use
  Company Number: None

PATIENT
  Age: 62 Year
  Sex: Male
  Weight: 101.25 kg

DRUGS (12)
  1. GLIMEPIRIDE. [Concomitant]
     Active Substance: GLIMEPIRIDE
  2. FLAXSEED [Concomitant]
     Active Substance: FLAX SEED
  3. ZIJA TEA [Concomitant]
  4. VIEKIRA PAK [Suspect]
     Active Substance: DASABUVIR\OMBITASVIR\PARITAPREVIR\RITONAVIR
     Indication: HEPATITIS C
     Dosage: ?          QUANTITY:5 TABLET(S);OTHER FREQUENCY:4 AM 1 PM;?
     Route: 048
     Dates: start: 20161230, end: 20161230
  5. METFORMIN [Concomitant]
     Active Substance: METFORMIN HYDROCHLORIDE
  6. OMEPRAZOLE. [Concomitant]
     Active Substance: OMEPRAZOLE
  7. ASPIRIN. [Concomitant]
     Active Substance: ASPIRIN
  8. ROSUVASTATIN. [Concomitant]
     Active Substance: ROSUVASTATIN
  9. MODERIBA [Suspect]
     Active Substance: RIBAVIRIN
     Indication: HEPATITIS C
     Dosage: ?          QUANTITY:1 TABLET(S);?
     Route: 048
     Dates: start: 20161014, end: 20161230
  10. VITAMIN C [Concomitant]
     Active Substance: ASCORBIC ACID
  11. DIVALPROEX ER [Concomitant]
     Active Substance: DIVALPROEX SODIUM
  12. MULTI VITAMIN [Concomitant]
     Active Substance: VITAMINS

REACTIONS (5)
  - Drug level below therapeutic [None]
  - Petit mal epilepsy [None]
  - Abnormal behaviour [None]
  - Drug interaction [None]
  - Road traffic accident [None]

NARRATIVE: CASE EVENT DATE: 20161230
